FAERS Safety Report 20533399 (Version 3)
Quarter: 2022Q1

REPORT INFORMATION
  Report Type: Spontaneous
  Country: US (occurrence: US)
  Receive Date: 20220301
  Receipt Date: 20220323
  Transmission Date: 20220423
  Serious: Yes (Hospitalization)
  Sender: FDA-Public Use
  Company Number: US-RIGEL PHARMACEUTICALS, INC.-2022FOS000053

PATIENT
  Sex: Female

DRUGS (3)
  1. TAVALISSE [Suspect]
     Active Substance: FOSTAMATINIB
     Indication: Immune thrombocytopenia
     Dosage: 100 MG, BID
     Route: 048
  2. TAVALISSE [Suspect]
     Active Substance: FOSTAMATINIB
     Dosage: 100 MG, BID
     Route: 048
  3. TAVALISSE [Suspect]
     Active Substance: FOSTAMATINIB
     Dosage: 100 MG, BID
     Route: 048

REACTIONS (10)
  - Platelet count decreased [Recovered/Resolved]
  - Platelet count increased [Unknown]
  - Weight increased [Unknown]
  - Increased appetite [Unknown]
  - Depressed mood [Unknown]
  - Decreased activity [Unknown]
  - Mobility decreased [Unknown]
  - Apathy [Unknown]
  - Walking aid user [Unknown]
  - Fatigue [Unknown]
